FAERS Safety Report 16866740 (Version 1)
Quarter: 2019Q3

REPORT INFORMATION
  Report Type: Report from Study
  Country: NL (occurrence: NL)
  Receive Date: 20190930
  Receipt Date: 20190930
  Transmission Date: 20191005
  Serious: Yes (Hospitalization)
  Sender: FDA-Public Use
  Company Number: PHHY2019NL223715

PATIENT
  Age: 65 Year
  Sex: Male

DRUGS (2)
  1. ZOMETA [Suspect]
     Active Substance: ZOLEDRONIC ACID
     Dosage: 1 DF, (4MG/100 ML) Q4W
     Route: 042
     Dates: start: 20190827
  2. ZOMETA [Suspect]
     Active Substance: ZOLEDRONIC ACID
     Indication: PRODUCT USED FOR UNKNOWN INDICATION
     Dosage: 1 DF, (4MG/100 ML) Q4W
     Route: 042
     Dates: start: 20190730

REACTIONS (3)
  - General physical health deterioration [Unknown]
  - Prostatic specific antigen increased [Unknown]
  - Asthenia [Unknown]

NARRATIVE: CASE EVENT DATE: 20190919
